FAERS Safety Report 6096912-6 (Version None)
Quarter: 2009Q1

REPORT INFORMATION
  Report Type: 
  Country: None (occurrence: None)
  Receive Date: 20090227
  Receipt Date: 20090216
  Transmission Date: 20090719
  Serious: Yes (Hospitalization)
  Sender: FDA-Public Use
  Company Number: DE-PFIZER INC-2009159762

PATIENT

DRUGS (7)
  1. SUNITINIB MALATE [Suspect]
     Indication: METASTATIC RENAL CELL CARCINOMA
     Dosage: 50 MG, 1X/DAY
     Route: 048
     Dates: start: 20070813
  2. BISOPROLOL [Concomitant]
     Indication: HYPERTENSION
     Dosage: UNK
     Dates: start: 20061123
  3. ACETYLSALICYLIC ACID [Concomitant]
     Dosage: UNK
     Dates: start: 20061123
  4. ALLOPURINOL [Concomitant]
     Indication: RENAL FAILURE
     Dosage: UNK
     Dates: start: 20061123
  5. LISINOPRIL [Concomitant]
     Indication: HYPERTENSION
     Dosage: UNK
     Dates: start: 20061123
  6. INSUMAN COMB ^HOECHST MARION ROUSSEL^ [Concomitant]
     Indication: DIABETES MELLITUS
     Dosage: UNK
     Dates: start: 20061123
  7. BRINZOLAMIDE [Concomitant]
     Dosage: UNK
     Dates: start: 20061123

REACTIONS (1)
  - RENAL FAILURE CHRONIC [None]
